FAERS Safety Report 6355019-0 (Version None)
Quarter: 2009Q3

REPORT INFORMATION
  Report Type: 
  Country: None (occurrence: None)
  Receive Date: 20090914
  Receipt Date: 20090904
  Transmission Date: 20100115
  Serious: Yes (Death, Other)
  Sender: FDA-Public Use
  Company Number: B0587109A

PATIENT
  Sex: Female
  Weight: 41 kg

DRUGS (8)
  1. TYKERB [Suspect]
     Indication: BREAST CANCER
     Dosage: 1250MG PER DAY
     Route: 048
     Dates: start: 20090501, end: 20090721
  2. XELODA [Concomitant]
     Indication: BREAST CANCER
     Dosage: 4800MG PER DAY
     Route: 048
     Dates: end: 20090721
  3. LOXONIN [Concomitant]
     Dosage: 180MG PER DAY
     Route: 048
  4. TAKEPRON [Concomitant]
     Dosage: 15MG PER DAY
     Route: 048
  5. LANDSEN [Concomitant]
     Dosage: 1MG PER DAY
     Route: 048
  6. DECADRON [Concomitant]
     Dosage: 2MG PER DAY
     Route: 048
  7. MAGMITT [Concomitant]
     Route: 048
  8. RADIATION [Concomitant]
     Dates: start: 20090430

REACTIONS (2)
  - HEPATIC FUNCTION ABNORMAL [None]
  - MALAISE [None]
